FAERS Safety Report 25698237 (Version 1)
Quarter: 2025Q3

REPORT INFORMATION
  Report Type: Spontaneous
  Country: AU (occurrence: AU)
  Receive Date: 20250819
  Receipt Date: 20250819
  Transmission Date: 20251021
  Serious: Yes (Other)
  Sender: CIPLA
  Company Number: AU-CIPLA (EU) LIMITED-2025AU10255

PATIENT

DRUGS (6)
  1. LAMOTRIGINE [Suspect]
     Active Substance: LAMOTRIGINE
     Indication: Juvenile absence epilepsy
     Dosage: 100 MILLIGRAM, BID
     Route: 065
  2. LAMOTRIGINE [Suspect]
     Active Substance: LAMOTRIGINE
     Indication: Petit mal epilepsy
     Dosage: 200 MILLIGRAM, BID
     Route: 065
  3. LEVETIRACETAM [Suspect]
     Active Substance: LEVETIRACETAM
     Indication: Juvenile absence epilepsy
     Route: 065
  4. LEVETIRACETAM [Suspect]
     Active Substance: LEVETIRACETAM
     Indication: Off label use
     Dosage: 1000 MILLIGRAM, BID
     Route: 065
  5. ETHOSUXIMIDE [Suspect]
     Active Substance: ETHOSUXIMIDE
     Indication: Juvenile absence epilepsy
     Dosage: 500 MILLIGRAM, BID
     Route: 065
  6. ETHOSUXIMIDE [Suspect]
     Active Substance: ETHOSUXIMIDE
     Indication: Petit mal epilepsy

REACTIONS (3)
  - Generalised tonic-clonic seizure [Unknown]
  - Drug ineffective for unapproved indication [Unknown]
  - Off label use [Unknown]
